FAERS Safety Report 13029908 (Version 3)
Quarter: 2017Q1

REPORT INFORMATION
  Report Type: Report from Study
  Country: CA (occurrence: CA)
  Receive Date: 20161215
  Receipt Date: 20170112
  Transmission Date: 20170428
  Serious: Yes (Other)
  Sender: FDA-Public Use
  Company Number: CA-JNJFOC-20161208678

PATIENT
  Age: 30 Year
  Sex: Female
  Weight: 68.04 kg

DRUGS (2)
  1. REMICADE [Suspect]
     Active Substance: INFLIXIMAB
     Indication: PSORIATIC ARTHROPATHY
     Route: 042
     Dates: start: 20111103
  2. REMICADE [Suspect]
     Active Substance: INFLIXIMAB
     Indication: PSORIATIC ARTHROPATHY
     Route: 042
     Dates: start: 20130903

REACTIONS (7)
  - Gangrene [Unknown]
  - Haemorrhoids [Recovered/Resolved]
  - Off label use [Unknown]
  - Influenza [Unknown]
  - Postoperative wound infection [Recovering/Resolving]
  - Vomiting [Unknown]
  - Product use issue [Unknown]

NARRATIVE: CASE EVENT DATE: 20111103
